FAERS Safety Report 4514345-8 (Version None)
Quarter: 2004Q4

REPORT INFORMATION
  Report Type: 
  Country: None (occurrence: None)
  Receive Date: 20041130
  Receipt Date: 20030630
  Transmission Date: 20050328
  Serious: Yes (Hospitalization, Disabling)
  Sender: FDA-Public Use
  Company Number: FR-MERCK-0307FRA00005

PATIENT
  Age: 47 Year
  Sex: Female

DRUGS (2)
  1. NORETHINDRONE ACETATE [Concomitant]
     Indication: CONTRACEPTION
     Route: 048
  2. ZOCOR [Suspect]
     Indication: HYPERCHOLESTEROLAEMIA
     Route: 048
     Dates: start: 19910101, end: 20021101

REACTIONS (8)
  - ALVEOLITIS [None]
  - CHEST PAIN [None]
  - COUGH [None]
  - HYPOXIA [None]
  - INFLAMMATION [None]
  - INTERSTITIAL LUNG DISEASE [None]
  - LUNG DISORDER [None]
  - WEIGHT DECREASED [None]
